FAERS Safety Report 25981558 (Version 1)
Quarter: 2025Q4

REPORT INFORMATION
  Report Type: Spontaneous
  Country: GB (occurrence: GB)
  Receive Date: 20251030
  Receipt Date: 20251030
  Transmission Date: 20260118
  Serious: Yes (Other)
  Sender: ACCORD
  Company Number: None

PATIENT
  Sex: Female

DRUGS (5)
  1. AMITRIPTYLINE [Suspect]
     Active Substance: AMITRIPTYLINE
     Indication: Product used for unknown indication
     Dosage: 40MG AT NIGHT
  2. SERTRALINE [Concomitant]
     Active Substance: SERTRALINE HYDROCHLORIDE
  3. TOPIRAMATE [Concomitant]
     Active Substance: TOPIRAMATE
  4. DESOGESTREL [Concomitant]
     Active Substance: DESOGESTREL
  5. NAPROXEN [Concomitant]
     Active Substance: NAPROXEN

REACTIONS (2)
  - Derealisation [Not Recovered/Not Resolved]
  - Deja vu [Not Recovered/Not Resolved]
